FAERS Safety Report 9695584 (Version 2)
Quarter: 2014Q2

REPORT INFORMATION
  Report Type: Report from Study
  Country: JP (occurrence: JP)
  Receive Date: 20131119
  Receipt Date: 20140623
  Transmission Date: 20141212
  Serious: Yes (Hospitalization, Other)
  Sender: FDA-Public Use
  Company Number: JP-CELGENEUS-087-50794-13112053

PATIENT
  Age: 62 Year
  Sex: Male
  Weight: 50 kg

DRUGS (19)
  1. VIDAZA [Suspect]
     Indication: MYELODYSPLASTIC SYNDROME
     Dosage: 66 MILLIGRAM/SQ. METER
     Route: 050
     Dates: start: 20130204, end: 20130214
  2. VIDAZA [Suspect]
     Dosage: 66 MILLIGRAM/SQ. METER
     Route: 050
     Dates: start: 20130405, end: 20130413
  3. VIDAZA [Suspect]
     Dosage: 66 MILLIGRAM/SQ. METER
     Route: 050
     Dates: start: 20130509, end: 20130517
  4. VIDAZA [Suspect]
     Dosage: 33 MILLIGRAM/SQ. METER
     Route: 050
     Dates: start: 20130612, end: 20130620
  5. VIDAZA [Suspect]
     Dosage: 33 MILLIGRAM/SQ. METER
     Route: 050
     Dates: start: 20130710, end: 20130717
  6. VIDAZA [Suspect]
     Dosage: 33 MILLIGRAM/SQ. METER
     Route: 050
     Dates: start: 20130813, end: 20130821
  7. RED BLOOD CELLS [Concomitant]
     Indication: TRANSFUSION
     Route: 041
  8. PLATELET [Concomitant]
     Indication: TRANSFUSION
     Route: 041
  9. NASEA [Concomitant]
     Indication: PRODUCT USED FOR UNKNOWN INDICATION
     Route: 065
     Dates: start: 20130204, end: 20130208
  10. NASEA [Concomitant]
     Route: 065
     Dates: start: 20130405, end: 20130407
  11. NASEA [Concomitant]
     Route: 065
     Dates: start: 20130410, end: 20130413
  12. ITRIZOLE [Concomitant]
     Indication: PRODUCT USED FOR UNKNOWN INDICATION
     Route: 065
     Dates: start: 20130202
  13. PARIET [Concomitant]
     Indication: PRODUCT USED FOR UNKNOWN INDICATION
     Route: 065
     Dates: start: 20130202
  14. BAKTAR [Concomitant]
     Indication: PRODUCT USED FOR UNKNOWN INDICATION
     Route: 065
     Dates: start: 20130204
  15. LOXONIN [Concomitant]
     Indication: PRODUCT USED FOR UNKNOWN INDICATION
     Route: 065
     Dates: start: 20130205, end: 20130210
  16. MEROPEN [Concomitant]
     Indication: PRODUCT USED FOR UNKNOWN INDICATION
     Route: 065
     Dates: start: 20130304, end: 20130317
  17. GRAN [Concomitant]
     Indication: PRODUCT USED FOR UNKNOWN INDICATION
     Route: 065
     Dates: start: 20130305, end: 20130311
  18. PREDONINE [Concomitant]
     Indication: PRODUCT USED FOR UNKNOWN INDICATION
     Route: 065
     Dates: start: 20130405, end: 20130407
  19. PREDONINE [Concomitant]
     Route: 065
     Dates: start: 20130410, end: 20130413

REACTIONS (14)
  - Shock [Recovered/Resolved]
  - Drug eruption [Recovered/Resolved]
  - Drug eruption [Recovered/Resolved]
  - Neutrophil count decreased [Recovered/Resolved]
  - White blood cell count decreased [Recovered/Resolved]
  - Platelet count decreased [Recovered/Resolved]
  - Escherichia sepsis [Recovered/Resolved]
  - C-reactive protein increased [Recovered/Resolved]
  - Eosinophil count increased [Recovered/Resolved]
  - Blood urea increased [Recovered/Resolved]
  - Blood creatinine increased [Recovered/Resolved]
  - Anaemia [Recovered/Resolved]
  - White blood cell count decreased [Not Recovered/Not Resolved]
  - Neutrophil count decreased [Not Recovered/Not Resolved]
